FAERS Safety Report 6109306-1 (Version None)
Quarter: 2009Q1

REPORT INFORMATION
  Report Type: 
  Country: None (occurrence: None)
  Receive Date: 20090310
  Receipt Date: 20090306
  Transmission Date: 20090719
  Serious: Yes (Hospitalization)
  Sender: FDA-Public Use
  Company Number: A0771799A

PATIENT
  Age: 70 Year
  Sex: Female

DRUGS (7)
  1. NICODERM CQ [Suspect]
     Indication: SMOKING CESSATION THERAPY
     Route: 062
     Dates: start: 20090111, end: 20090117
  2. ASPIRIN [Concomitant]
  3. ASCORBIC ACID [Concomitant]
     Indication: SUPPLEMENTATION THERAPY
  4. VITAMIN E [Concomitant]
     Indication: SUPPLEMENTATION THERAPY
  5. CALCIUM [Concomitant]
  6. FLAXSEED OIL [Concomitant]
  7. PLAVIX [Concomitant]
     Dates: start: 20090108, end: 20090122

REACTIONS (5)
  - BALANCE DISORDER [None]
  - CAROTID ARTERIOSCLEROSIS [None]
  - DIZZINESS [None]
  - FEAR OF FALLING [None]
  - NAUSEA [None]
